FAERS Safety Report 15585033 (Version 2)
Quarter: 2025Q3

REPORT INFORMATION
  Report Type: Spontaneous
  Country: EU (occurrence: EU)
  Receive Date: 20181102
  Receipt Date: 20250711
  Transmission Date: 20251020
  Serious: Yes (Hospitalization, Other)
  Sender: TAKEDA
  Company Number: None

PATIENT
  Age: 18 Year
  Sex: Female

DRUGS (2)
  1. LISDEXAMFETAMINE DIMESYLATE [Suspect]
     Active Substance: LISDEXAMFETAMINE DIMESYLATE
     Indication: Product used for unknown indication
  2. OXAZEPAM [Suspect]
     Active Substance: OXAZEPAM
     Indication: Product used for unknown indication

REACTIONS (6)
  - Suicide attempt [Recovering/Resolving]
  - Toxicity to various agents [Recovering/Resolving]
  - Hypokalaemia [Recovering/Resolving]
  - Suicidal ideation [Recovering/Resolving]
  - Intentional self-injury [Recovering/Resolving]
  - Intentional overdose [Recovering/Resolving]

NARRATIVE: CASE EVENT DATE: 20180928
